FAERS Safety Report 9219597 (Version 1)
Quarter: 2013Q1

REPORT INFORMATION
  Report Type: Spontaneous
  Country: US (occurrence: None)
  Receive Date: 20120827
  Receipt Date: 20120827
  Transmission Date: 20140127
  Serious: Yes (Death)
  Sender: FDA-Public Use
  Company Number: KV201200076

PATIENT
  Sex: 0

DRUGS (1)
  1. MAKENA [Suspect]
     Indication: EXPOSURE DURING PREGNANCY
     Dates: start: 20120501, end: 20120501

REACTIONS (1)
  - Abortion spontaneous [None]
